FAERS Safety Report 21079010 (Version 1)
Quarter: 2022Q3

REPORT INFORMATION
  Report Type: Spontaneous
  Country: TW (occurrence: None)
  Receive Date: 20220713
  Receipt Date: 20220713
  Transmission Date: 20221026
  Serious: Yes (Hospitalization)
  Sender: FDA-Public Use
  Company Number: 2022A249589

PATIENT
  Age: 55 Year
  Sex: Female

DRUGS (2)
  1. OSIMERTINIB [Suspect]
     Active Substance: OSIMERTINIB
     Indication: Non-small cell lung cancer
     Dosage: 80 MG/DAY SINCE DECEMBER 2020
     Route: 048
     Dates: start: 202012
  2. AFATINIB [Concomitant]
     Active Substance: AFATINIB
     Dosage: 40 MG DAILY
     Route: 065

REACTIONS (3)
  - Jaundice [Unknown]
  - Drug-induced liver injury [Unknown]
  - Skin toxicity [Unknown]

NARRATIVE: CASE EVENT DATE: 20210901
